FAERS Safety Report 8508402-9 (Version None)
Quarter: 2012Q2

REPORT INFORMATION
  Report Type: 
  Country: None (occurrence: None)
  Receive Date: 20120405
  Receipt Date: 20090105
  Transmission Date: 20120825
  Serious: Yes (Other)
  Sender: FDA-Public Use
  Company Number: PHEH2008US09674

PATIENT
  Age: 67 Year
  Sex: Female

DRUGS (1)
  1. RECLAST [Suspect]
     Indication: OSTEOPOROSIS
     Dosage: 5 MG, ONCE/SINGLE, INTRAVENOUS
     Route: 042

REACTIONS (5)
  - SOFT TISSUE INFECTION [None]
  - BONE GRAFT [None]
  - PRIMARY SEQUESTRUM [None]
  - ABSCESS [None]
  - OSTEONECROSIS [None]
